APPROVED DRUG PRODUCT: SODIUM CHLORIDE 0.45% IN PLASTIC CONTAINER
Active Ingredient: SODIUM CHLORIDE
Strength: 450MG/100ML
Dosage Form/Route: INJECTABLE;INJECTION
Application: N018503 | Product #001
Applicant: MILES LABORATORIES INC
Approved: Approved Prior to Jan 1, 1982 | RLD: No | RS: No | Type: DISCN